FAERS Safety Report 5858673-2 (Version None)
Quarter: 2008Q3

REPORT INFORMATION
  Report Type: 
  Country: None (occurrence: None)
  Receive Date: 20080826
  Receipt Date: 20080816
  Transmission Date: 20090109
  Serious: No
  Sender: FDA-Public Use
  Company Number: US-BOEHRINGER INGELHEIM GMBH, GERMANY-2008-BP-12990BP

PATIENT
  Sex: Female

DRUGS (13)
  1. ZANTAC 150 [Suspect]
     Indication: GASTROOESOPHAGEAL REFLUX DISEASE
     Route: 048
     Dates: start: 20080801
  2. LYRICA [Concomitant]
     Indication: PAIN
     Route: 048
     Dates: start: 20080801
  3. LYRICA [Concomitant]
     Indication: ARTHRITIS
  4. LYRICA [Concomitant]
     Indication: NEUROPATHY PERIPHERAL
  5. CORGARD [Concomitant]
     Route: 048
  6. PAMELOR [Concomitant]
     Route: 048
  7. ROZEREM [Concomitant]
  8. LUTEIN [Concomitant]
  9. NATURALE [Concomitant]
     Indication: SKIN DISORDER
  10. NATURALE [Concomitant]
     Indication: HAIR DISORDER
  11. NATURALE [Concomitant]
     Indication: NAIL DISORDER
  12. DOXYCYCLINE [Concomitant]
     Indication: ANIMAL BITE
     Dates: start: 20080801
  13. DOXYCYCLINE [Concomitant]
     Indication: INFECTION

REACTIONS (1)
  - DIZZINESS [None]
